FAERS Safety Report 19491105 (Version 1)
Quarter: 2021Q3

REPORT INFORMATION
  Report Type: Spontaneous
  Country: JP (occurrence: JP)
  Receive Date: 20210705
  Receipt Date: 20210705
  Transmission Date: 20211014
  Serious: Yes (Other)
  Sender: FDA-Public Use
  Company Number: JP-TAKEDA-2021TJP050524AA

PATIENT
  Age: 10 Year
  Sex: Male

DRUGS (1)
  1. BUCCOLAM OROMUCOSAL SOLUTION 10MG [Suspect]
     Active Substance: MIDAZOLAM HYDROCHLORIDE
     Indication: STATUS EPILEPTICUS
     Dosage: 10 MILLIGRAM, PRN
     Route: 050
     Dates: start: 202105, end: 202105

REACTIONS (1)
  - Respiratory depression [Recovered/Resolved]

NARRATIVE: CASE EVENT DATE: 202105
